FAERS Safety Report 19667309 (Version 1)
Quarter: 2021Q3

REPORT INFORMATION
  Report Type: Spontaneous
  Country: FR (occurrence: FR)
  Receive Date: 20210806
  Receipt Date: 20210806
  Transmission Date: 20211014
  Serious: Yes (Other)
  Sender: FDA-Public Use
  Company Number: FR-ACCORD-234519

PATIENT
  Age: 27 Year
  Sex: Female

DRUGS (1)
  1. MONTELUKAST [Suspect]
     Active Substance: MONTELUKAST SODIUM
     Indication: PRODUCT USED FOR UNKNOWN INDICATION
     Route: 048
     Dates: start: 2019

REACTIONS (8)
  - Irritability [Unknown]
  - Abnormal dreams [Unknown]
  - Persecutory delusion [Unknown]
  - Depression [Unknown]
  - Suicidal ideation [Unknown]
  - Insomnia [Unknown]
  - Anxiety [Unknown]
  - Obsessive thoughts [Unknown]

NARRATIVE: CASE EVENT DATE: 2020
